FAERS Safety Report 18476681 (Version 2)
Quarter: 2020Q4

REPORT INFORMATION
  Report Type: Spontaneous
  Country: US (occurrence: US)
  Receive Date: 20201107
  Receipt Date: 20201118
  Transmission Date: 20210114
  Serious: No
  Sender: FDA-Public Use
  Company Number: US-SA-2020SA311733

PATIENT

DRUGS (1)
  1. DUPIXENT [Suspect]
     Active Substance: DUPILUMAB
     Indication: IDIOPATHIC URTICARIA
     Dosage: 300 MG, QOW
     Route: 058
     Dates: start: 20200417

REACTIONS (8)
  - Ocular hyperaemia [Unknown]
  - Pain [Unknown]
  - Product use in unapproved indication [Unknown]
  - Productive cough [Unknown]
  - Illness [Unknown]
  - Bacterial infection [Unknown]
  - Eye irritation [Unknown]
  - Eye inflammation [Unknown]

NARRATIVE: CASE EVENT DATE: 2020
